FAERS Safety Report 9171718 (Version 1)
Quarter: 2013Q1

REPORT INFORMATION
  Report Type: Spontaneous
  Country: GB (occurrence: GB)
  Receive Date: 20130319
  Receipt Date: 20130319
  Transmission Date: 20140127
  Serious: Yes (Death)
  Sender: FDA-Public Use
  Company Number: GB-CELGENEUS-167-21880-13032201

PATIENT
  Sex: Female

DRUGS (6)
  1. REVLIMID [Suspect]
     Indication: PLASMA CELL MYELOMA
     Route: 048
     Dates: start: 200910, end: 200911
  2. REVLIMID [Suspect]
     Route: 048
     Dates: start: 201001
  3. REVLIMID [Suspect]
     Route: 048
     Dates: start: 201002, end: 201003
  4. REVLIMID [Suspect]
     Route: 048
     Dates: start: 201004, end: 201204
  5. REVLIMID [Suspect]
     Route: 048
     Dates: start: 201206, end: 201209
  6. REVLIMID [Suspect]
     Route: 048
     Dates: start: 201211, end: 201211

REACTIONS (1)
  - Death [Fatal]
